FAERS Safety Report 5525867-5 (Version None)
Quarter: 2007Q4

REPORT INFORMATION
  Report Type: 
  Country: None (occurrence: None)
  Receive Date: 20071126
  Receipt Date: 20071025
  Transmission Date: 20080405
  Serious: No
  Sender: FDA-Public Use
  Company Number: AR-AVENTIS-200713458GDDC

PATIENT

DRUGS (2)
  1. ARAVA [Suspect]
     Dosage: DOSE: UNK
     Route: 064
     Dates: start: 20040501, end: 20061201
  2. FOLIC ACID [Suspect]
     Dosage: DOSE: UNK
     Route: 064

REACTIONS (1)
  - JAUNDICE NEONATAL [None]
